FAERS Safety Report 9149624 (Version 1)
Quarter: 2013Q1

REPORT INFORMATION
  Report Type: Spontaneous
  Country: HU (occurrence: HU)
  Receive Date: 20130308
  Receipt Date: 20130308
  Transmission Date: 20140127
  Serious: Yes (Hospitalization)
  Sender: FDA-Public Use
  Company Number: HU-ABBOTT-03P-076-0215641-00

PATIENT
  Age: 56 Year
  Sex: Male
  Weight: 95 kg

DRUGS (7)
  1. TARKA [Suspect]
     Indication: HYPERTENSION
     Dates: start: 20010307
  2. GOPTEN [Suspect]
     Indication: HYPERTENSION
     Dates: start: 20010123
  3. ISOPTIN SR [Suspect]
     Indication: HYPERTENSION
     Dates: start: 20001212
  4. ASTRIX [Concomitant]
     Indication: MYOCARDIAL ISCHAEMIA
     Route: 048
     Dates: start: 1996
  5. EDNYT [Concomitant]
     Indication: HYPERTENSION
     Route: 048
     Dates: start: 1996
  6. PLENDIL [Concomitant]
     Indication: HYPERTENSION
     Dates: start: 1996
  7. ZOCOR [Concomitant]
     Indication: HYPERLIPIDAEMIA
     Dates: start: 1997

REACTIONS (2)
  - Musculoskeletal pain [Recovered/Resolved]
  - Shoulder operation [Recovered/Resolved]
